FAERS Safety Report 5769687-5 (Version None)
Quarter: 2008Q2

REPORT INFORMATION
  Report Type: 
  Country: None (occurrence: None)
  Receive Date: 20080612
  Receipt Date: 20080407
  Transmission Date: 20081010
  Serious: No
  Sender: FDA-Public Use
  Company Number: US-ABBOTT-08P-163-0445856-00

PATIENT
  Sex: Female
  Weight: 130.3 kg

DRUGS (12)
  1. HUMIRA [Suspect]
     Indication: PSORIASIS
     Route: 058
     Dates: start: 20080101
  2. HUMIRA [Suspect]
     Indication: PSORIATIC ARTHROPATHY
  3. METHOTREXATE [Concomitant]
     Indication: PSORIASIS
     Route: 048
  4. METHOTREXATE [Concomitant]
     Indication: ARTHRALGIA
  5. INSULIN [Concomitant]
     Indication: DIABETES MELLITUS
     Route: 058
  6. INSULIN [Concomitant]
     Route: 058
  7. INSULIN GLARGINE [Concomitant]
     Indication: DIABETES MELLITUS
     Route: 058
  8. INSULIN GLARGINE [Concomitant]
     Route: 058
  9. LISINOPRIL [Concomitant]
     Indication: HYPERTENSION
     Route: 048
  10. METOPROLOL SUCCINATE [Concomitant]
     Indication: BLOOD PRESSURE
     Route: 048
  11. NORTRIPTYLINE HCL [Concomitant]
     Indication: NEURALGIA
     Route: 048
  12. DULOXETINE HYDROCHLORIDE [Concomitant]
     Indication: DEPRESSION
     Route: 048

REACTIONS (2)
  - ACCIDENTAL NEEDLE STICK [None]
  - DRUG INEFFECTIVE [None]
